FAERS Safety Report 7748790-4 (Version None)
Quarter: 2011Q3

REPORT INFORMATION
  Report Type: 
  Country: None (occurrence: None)
  Receive Date: 20110913
  Receipt Date: 20110913
  Transmission Date: 20111222
  Serious: Yes (Hospitalization)
  Sender: FDA-Public Use
  Company Number: None

PATIENT
  Sex: Female
  Weight: 66.6 kg

DRUGS (4)
  1. DEXAMETHASONE [Suspect]
     Dosage: 160 MG
     Dates: end: 20110825
  2. MELPHALAN HYDROCHLORIDE [Suspect]
     Dosage: 64 MG
     Dates: end: 20110825
  3. METOLAZONE [Concomitant]
  4. FUROSEMIDE [Concomitant]

REACTIONS (5)
  - NEUTROPENIA [None]
  - CHILLS [None]
  - HYPOKALAEMIA [None]
  - DECREASED APPETITE [None]
  - ASTHENIA [None]
